FAERS Safety Report 10681609 (Version 1)
Quarter: 2014Q4

REPORT INFORMATION
  Report Type: Report from Study
  Country: MW (occurrence: None)
  Receive Date: 20141224
  Receipt Date: 20141224
  Transmission Date: 20150529
  Serious: Yes (Congenital Anomaly)
  Sender: FDA-Public Use
  Company Number: A1084018A

PATIENT
  Age: 1 Day
  Sex: Male
  Weight: 1.7 kg

DRUGS (11)
  1. PARACETAMOL [Concomitant]
     Active Substance: ACETAMINOPHEN
  2. TRUVADA [Suspect]
     Active Substance: EMTRICITABINE\TENOFOVIR DISOPROXIL FUMARATE
     Indication: HIV INFECTION
     Dosage: TOTAL DAILY DOSE OF 1 TABLET/CAPSULE, TRANSPLACENTAL
     Route: 064
     Dates: start: 20120426, end: 20140515
  3. EFAVIRENZ [Suspect]
     Active Substance: EFAVIRENZ
     Indication: HIV INFECTION
     Dosage: UNKNOWN TRANSPLACENTAL
     Route: 064
     Dates: start: 20110608
  4. METRONIDAZOLE. [Concomitant]
     Active Substance: METRONIDAZOLE
  5. LAMIVUDINE AND ZIDOVUDINE [Suspect]
     Active Substance: LAMIVUDINE\ZIDOVUDINE
     Indication: HIV INFECTION
     Dosage: UNK UNK, U , TRANSPLACENTAL
     Route: 064
     Dates: start: 20110608
  6. NORVIR [Suspect]
     Active Substance: RITONAVIR
     Indication: HIV INFECTION
     Route: 064
     Dates: start: 20120426, end: 20140410
  7. AMOXICILLIN. [Concomitant]
     Active Substance: AMOXICILLIN
  8. BENYLIN [Concomitant]
     Active Substance: DIPHENHYDRAMINE HYDROCHLORIDE
  9. KALETRA [Suspect]
     Active Substance: LOPINAVIR\RITONAVIR
     Indication: HIV INFECTION
     Dosage: UNK, U, TRANSP;ACENTAL
     Route: 064
     Dates: start: 20140410, end: 20140515
  10. REYATAZ [Suspect]
     Active Substance: ATAZANAVIR SULFATE
     Indication: HIV INFECTION
     Dosage: UNK, U, TRANSPLACENTAL
     Route: 064
     Dates: start: 20120426, end: 20140410
  11. COUGH SYRUP (COUGH COLD PREPARATIONS NOS) [Concomitant]

REACTIONS (3)
  - Premature baby [None]
  - Accessory auricle [None]
  - Maternal drugs affecting foetus [None]

NARRATIVE: CASE EVENT DATE: 20140516
